FAERS Safety Report 5042361-9 (Version None)
Quarter: 2006Q2

REPORT INFORMATION
  Report Type: 
  Country: None (occurrence: None)
  Receive Date: 20060627
  Receipt Date: 20060615
  Transmission Date: 20061013
  Serious: Yes (Hospitalization)
  Sender: FDA-Public Use
  Company Number: FRWYE734815JUN06

PATIENT
  Age: 79 Year
  Sex: Male

DRUGS (5)
  1. EFFEXOR XR [Suspect]
     Dosage: SEE IMAGE
     Route: 048
     Dates: end: 20060301
  2. EFFEXOR XR [Suspect]
     Dosage: SEE IMAGE
     Route: 048
     Dates: start: 20060301, end: 20060311
  3. EBIXA (MEMANTINE HYDROCHLORIDE, , 0) [Suspect]
     Dosage: SEE IMAGE
     Route: 048
     Dates: end: 20060310
  4. EBIXA (MEMANTINE HYDROCHLORIDE, , 0) [Suspect]
     Dosage: SEE IMAGE
     Route: 048
     Dates: start: 20060311
  5. REMINYL (GALANTAMINE) [Concomitant]

REACTIONS (5)
  - CONDITION AGGRAVATED [None]
  - DEMENTIA ALZHEIMER'S TYPE [None]
  - DISORIENTATION [None]
  - FALL [None]
  - NORMAL PRESSURE HYDROCEPHALUS [None]
